FAERS Safety Report 15719031 (Version 2)
Quarter: 2018Q4

REPORT INFORMATION
  Report Type: Spontaneous
  Country: RU (occurrence: RU)
  Receive Date: 20181213
  Receipt Date: 20181219
  Transmission Date: 20190205
  Serious: Yes (Other)
  Sender: FDA-Public Use
  Company Number: RU-SAKK-2018SA336486AA

PATIENT
  Age: 12 Year
  Sex: Female

DRUGS (2)
  1. TOUJEO [Suspect]
     Active Substance: INSULIN GLARGINE
     Dosage: 12 IU
     Route: 058
  2. TOUJEO [Suspect]
     Active Substance: INSULIN GLARGINE
     Indication: TYPE 1 DIABETES MELLITUS
     Dosage: 2 IU, UNK
     Route: 058
     Dates: start: 201812

REACTIONS (3)
  - Diabetic metabolic decompensation [Recovered/Resolved]
  - Off label use [Unknown]
  - Hyperglycaemia [Recovered/Resolved]
